FAERS Safety Report 9693485 (Version 1)
Quarter: 2013Q4

REPORT INFORMATION
  Report Type: Spontaneous
  Country: US (occurrence: US)
  Receive Date: 20131118
  Receipt Date: 20131118
  Transmission Date: 20140711
  Serious: No
  Sender: FDA-Public Use
  Company Number: US-009507513-1311USA007302

PATIENT
  Age: 11 Year
  Sex: Female

DRUGS (2)
  1. CLARITIN ORAL SOLUTION [Suspect]
     Indication: NASOPHARYNGITIS
     Dosage: UNK, ONCE
     Route: 048
     Dates: start: 20131103
  2. CLARITIN ORAL SOLUTION [Suspect]
     Dosage: UNK, ONCE
     Route: 048
     Dates: start: 20131104

REACTIONS (2)
  - Overdose [Unknown]
  - Off label use [Unknown]
